FAERS Safety Report 24095195 (Version 1)
Quarter: 2024Q3

REPORT INFORMATION
  Report Type: Spontaneous
  Country: FR (occurrence: FR)
  Receive Date: 20240716
  Receipt Date: 20240716
  Transmission Date: 20241017
  Serious: Yes (Hospitalization, Other)
  Sender: CIPLA
  Company Number: FR-CIPLA LTD.-2024FR07241

PATIENT

DRUGS (2)
  1. RIVAROXABAN [Suspect]
     Active Substance: RIVAROXABAN
     Indication: Prophylaxis
     Dosage: 20 MILLIGRAM QD (XARLETO)
     Route: 048
     Dates: start: 2015, end: 20240510
  2. RIVAROXABAN [Suspect]
     Active Substance: RIVAROXABAN
     Dosage: 20 MILLIGRAM QD (ZENTIVA)
     Route: 048
     Dates: start: 20240511, end: 20240531

REACTIONS (3)
  - Peptic ulcer [Not Recovered/Not Resolved]
  - Product substitution issue [Not Recovered/Not Resolved]
  - Haematemesis [Not Recovered/Not Resolved]

NARRATIVE: CASE EVENT DATE: 20240601
